FAERS Safety Report 9068613 (Version 1)
Quarter: 2013Q1

REPORT INFORMATION
  Report Type: Spontaneous
  Country: US (occurrence: US)
  Receive Date: 20130206
  Receipt Date: 20130206
  Transmission Date: 20140127
  Serious: Yes (Hospitalization)
  Sender: FDA-Public Use
  Company Number: US-PFIZER INC-2013048439

PATIENT
  Age: 65 Year
  Sex: Female
  Weight: 125 kg

DRUGS (5)
  1. LYRICA [Suspect]
     Indication: NEURALGIA
     Dosage: 50 MG, 3X/DAY
     Route: 048
     Dates: start: 20120807, end: 20120918
  2. PILOCARPINE HYDROCHLORIDE [Suspect]
     Indication: DRY MOUTH
     Dosage: 5 MG, UNK
     Dates: start: 201208
  3. AMBIEN [Suspect]
     Indication: SLEEP DISORDER
     Dosage: 5 MG, DAILY
  4. CYMBALTA [Suspect]
     Indication: NEURALGIA
     Dosage: UNK
  5. TRAZODONE [Concomitant]
     Indication: SLEEP DISORDER
     Dosage: 75 MG, DAILY
     Dates: end: 2012

REACTIONS (7)
  - Sinus disorder [Unknown]
  - Speech disorder [Unknown]
  - Dry mouth [Not Recovered/Not Resolved]
  - Dysgeusia [Not Recovered/Not Resolved]
  - Salivary hypersecretion [Unknown]
  - Neuralgia [Unknown]
  - Drug ineffective [Unknown]
